FAERS Safety Report 18517264 (Version 1)
Quarter: 2020Q4

REPORT INFORMATION
  Report Type: Spontaneous
  Country: FR (occurrence: FR)
  Receive Date: 20201117
  Receipt Date: 20201117
  Transmission Date: 20210114
  Serious: Yes (Life-Threatening, Disabling)
  Sender: FDA-Public Use
  Company Number: None

PATIENT
  Age: 47 Year
  Sex: Female
  Weight: 65 kg

DRUGS (1)
  1. ABILIFY [Suspect]
     Active Substance: ARIPIPRAZOLE
     Indication: SCHIZOPHRENIA
     Dates: start: 20191125, end: 20200103

REACTIONS (5)
  - Salivary hypersecretion [None]
  - Feeling jittery [None]
  - Tremor [None]
  - Decreased appetite [None]
  - Feeling abnormal [None]

NARRATIVE: CASE EVENT DATE: 20191125
